FAERS Safety Report 21445483 (Version 1)
Quarter: 2022Q4

REPORT INFORMATION
  Report Type: Spontaneous
  Country: US (occurrence: None)
  Receive Date: 20221011
  Receipt Date: 20221011
  Transmission Date: 20230113
  Serious: Yes (Life-Threatening, Other)
  Sender: FDA-Public Use
  Company Number: None

PATIENT
  Age: 87 Year
  Sex: Female
  Weight: 81.65 kg

DRUGS (1)
  1. MULTAQ [Suspect]
     Active Substance: DRONEDARONE
     Indication: Atrial fibrillation
     Dosage: FREQUENCY : TWICE A DAY;?
     Route: 048
     Dates: start: 20220908, end: 20220910

REACTIONS (16)
  - Pruritus [None]
  - Ear pruritus [None]
  - Eyelids pruritus [None]
  - Pruritus [None]
  - Pruritus [None]
  - Dyspnoea [None]
  - Chest discomfort [None]
  - Dysphagia [None]
  - Chromaturia [None]
  - Fatigue [None]
  - Abdominal pain upper [None]
  - Faeces discoloured [None]
  - Throat clearing [None]
  - Pruritus [None]
  - Rhinorrhoea [None]
  - Hypersensitivity [None]

NARRATIVE: CASE EVENT DATE: 20220908
